FAERS Safety Report 4727566-6 (Version None)
Quarter: 2005Q3

REPORT INFORMATION
  Report Type: 
  Country: None (occurrence: None)
  Receive Date: 20050727
  Receipt Date: 20050727
  Transmission Date: 20060218
  Serious: Yes (Other)
  Sender: FDA-Public Use
  Company Number: None

PATIENT
  Age: 69 Year
  Sex: Male
  Weight: 86.1834 kg

DRUGS (11)
  1. OXYCODONE 10 MG [Suspect]
     Indication: BACK PAIN
     Dosage: 1 PILL TID ORAL
     Route: 048
     Dates: start: 20050718, end: 20050725
  2. OXYCODONE 10 MG [Suspect]
     Indication: POST LAMINECTOMY SYNDROME
     Dosage: 1 PILL TID ORAL
     Route: 048
     Dates: start: 20050718, end: 20050725
  3. OMEPRAZOLE [Concomitant]
  4. PROMETHAZINE [Concomitant]
  5. LIPITOR [Concomitant]
  6. TRIAMTERENE AND HYDROCHLOROTHIAZIDE [Concomitant]
  7. PLAVIX [Concomitant]
  8. ALTACE [Concomitant]
  9. COREG [Concomitant]
  10. ALLEGRA [Concomitant]
  11. LEVOXYL [Concomitant]

REACTIONS (4)
  - DRUG INEFFECTIVE [None]
  - NAUSEA [None]
  - THERAPEUTIC RESPONSE UNEXPECTED WITH DRUG SUBSTITUTION [None]
  - VOMITING [None]
